FAERS Safety Report 16376247 (Version 1)
Quarter: 2019Q2

REPORT INFORMATION
  Report Type: Spontaneous
  Country: FR (occurrence: FR)
  Receive Date: 20190531
  Receipt Date: 20190531
  Transmission Date: 20190711
  Serious: Yes (Hospitalization, Other)
  Sender: FDA-Public Use
  Company Number: FR-AUROBINDO-AUR-APL-2019-005689

PATIENT

DRUGS (3)
  1. RIXATHON [Suspect]
     Active Substance: RITUXIMAB
     Indication: SYSTEMIC SCLERODERMA
     Dosage: 1 GRAM, 13 DAYS
     Route: 041
     Dates: start: 20180705, end: 20180718
  2. METOJECT [Suspect]
     Active Substance: METHOTREXATE SODIUM
     Indication: SYSTEMIC SCLERODERMA
     Dosage: 15 MILLIGRAM, EVERY WEEK
     Route: 058
     Dates: start: 201806, end: 20181221
  3. PREDNISONE ARROW [Suspect]
     Active Substance: PREDNISONE
     Indication: SYSTEMIC SCLERODERMA
     Dosage: 10 MILLIGRAM, ONCE A DAY
     Route: 048
     Dates: start: 201806

REACTIONS (1)
  - Pneumocystis jirovecii pneumonia [Recovering/Resolving]

NARRATIVE: CASE EVENT DATE: 20181231
